FAERS Safety Report 17258775 (Version 3)
Quarter: 2025Q3

REPORT INFORMATION
  Report Type: Spontaneous
  Country: EU (occurrence: EU)
  Receive Date: 20200110
  Receipt Date: 20250909
  Transmission Date: 20251021
  Serious: Yes (Life-Threatening, Other)
  Sender: MYLAN
  Company Number: EU-ZENTIVA-2019-ZT-000125

PATIENT
  Age: 44 Year
  Sex: Female

DRUGS (28)
  1. DOXORUBICIN [Suspect]
     Active Substance: DOXORUBICIN
     Indication: Breast cancer
     Dates: start: 201306, end: 201309
  2. DOXORUBICIN [Suspect]
     Active Substance: DOXORUBICIN
     Route: 065
     Dates: start: 201306, end: 201309
  3. DOXORUBICIN [Suspect]
     Active Substance: DOXORUBICIN
     Route: 065
     Dates: start: 201306, end: 201309
  4. DOXORUBICIN [Suspect]
     Active Substance: DOXORUBICIN
     Dates: start: 201306, end: 201309
  5. LETROZOLE [Suspect]
     Active Substance: LETROZOLE
     Indication: Breast cancer
     Dosage: 2.5 MILLIGRAM, QD
     Dates: start: 201306, end: 201402
  6. LETROZOLE [Suspect]
     Active Substance: LETROZOLE
     Dosage: 2.5 MILLIGRAM, QD
     Route: 065
     Dates: start: 201306, end: 201402
  7. LETROZOLE [Suspect]
     Active Substance: LETROZOLE
     Dosage: 2.5 MILLIGRAM, QD
     Route: 065
     Dates: start: 201306, end: 201402
  8. LETROZOLE [Suspect]
     Active Substance: LETROZOLE
     Dosage: 2.5 MILLIGRAM, QD
     Dates: start: 201306, end: 201402
  9. CAPECITABINE [Suspect]
     Active Substance: CAPECITABINE
     Indication: Product used for unknown indication
     Dosage: 1 DOSAGE FORM, BID (53 CYCLES GIVEN INTERMITTENTLY FOR 14 DAYS ON A 21-DAY CYCLE)
     Dates: start: 201303, end: 201706
  10. CAPECITABINE [Suspect]
     Active Substance: CAPECITABINE
     Dosage: 1 DOSAGE FORM, BID (53 CYCLES GIVEN INTERMITTENTLY FOR 14 DAYS ON A 21-DAY CYCLE)
     Route: 065
     Dates: start: 201303, end: 201706
  11. CAPECITABINE [Suspect]
     Active Substance: CAPECITABINE
     Dosage: 1 DOSAGE FORM, BID (53 CYCLES GIVEN INTERMITTENTLY FOR 14 DAYS ON A 21-DAY CYCLE)
     Route: 065
     Dates: start: 201303, end: 201706
  12. CAPECITABINE [Suspect]
     Active Substance: CAPECITABINE
     Dosage: 1 DOSAGE FORM, BID (53 CYCLES GIVEN INTERMITTENTLY FOR 14 DAYS ON A 21-DAY CYCLE)
     Dates: start: 201303, end: 201706
  13. DOCETAXEL [Suspect]
     Active Substance: DOCETAXEL
     Indication: Breast cancer
  14. DOCETAXEL [Suspect]
     Active Substance: DOCETAXEL
     Route: 065
  15. DOCETAXEL [Suspect]
     Active Substance: DOCETAXEL
     Route: 065
  16. DOCETAXEL [Suspect]
     Active Substance: DOCETAXEL
  17. CYCLOPHOSPHAMIDE [Suspect]
     Active Substance: CYCLOPHOSPHAMIDE
     Indication: Breast cancer
     Dates: start: 2009
  18. CYCLOPHOSPHAMIDE [Suspect]
     Active Substance: CYCLOPHOSPHAMIDE
     Dates: start: 2009
  19. CYCLOPHOSPHAMIDE [Suspect]
     Active Substance: CYCLOPHOSPHAMIDE
     Route: 065
     Dates: start: 2009
  20. CYCLOPHOSPHAMIDE [Suspect]
     Active Substance: CYCLOPHOSPHAMIDE
     Route: 065
     Dates: start: 2009
  21. CYCLOPHOSPHAMIDE [Suspect]
     Active Substance: CYCLOPHOSPHAMIDE
     Dates: start: 201306
  22. CYCLOPHOSPHAMIDE [Suspect]
     Active Substance: CYCLOPHOSPHAMIDE
     Dates: start: 201306
  23. CYCLOPHOSPHAMIDE [Suspect]
     Active Substance: CYCLOPHOSPHAMIDE
     Route: 065
     Dates: start: 201306
  24. CYCLOPHOSPHAMIDE [Suspect]
     Active Substance: CYCLOPHOSPHAMIDE
     Route: 065
     Dates: start: 201306
  25. TAMOXIFEN [Suspect]
     Active Substance: TAMOXIFEN
     Indication: Breast cancer
  26. TAMOXIFEN [Suspect]
     Active Substance: TAMOXIFEN
     Route: 065
  27. TAMOXIFEN [Suspect]
     Active Substance: TAMOXIFEN
     Route: 065
  28. TAMOXIFEN [Suspect]
     Active Substance: TAMOXIFEN

REACTIONS (7)
  - Bone lesion [Not Recovered/Not Resolved]
  - Metastases to ovary [Not Recovered/Not Resolved]
  - Disease progression [Not Recovered/Not Resolved]
  - Metastatic lymphoma [Recovering/Resolving]
  - Liver disorder [Not Recovered/Not Resolved]
  - Hepatic function abnormal [Not Recovered/Not Resolved]
  - Drug ineffective [Not Recovered/Not Resolved]

NARRATIVE: CASE EVENT DATE: 20130501
